FAERS Safety Report 5087675-1 (Version None)
Quarter: 2006Q3

REPORT INFORMATION
  Report Type: 
  Country: None (occurrence: None)
  Receive Date: 20060727
  Receipt Date: 20060404
  Transmission Date: 20061208
  Serious: Yes (Other)
  Sender: FDA-Public Use
  Company Number: 2006047464

PATIENT
  Age: 83 Year
  Sex: Male
  Weight: 72.5755 kg

DRUGS (3)
  1. LYRICA [Suspect]
     Indication: DIABETIC NEUROPATHY
     Dosage: 50 MG (50 MG, 1 IN 1 D), UNKNOWN
     Dates: start: 20051201, end: 20060201
  2. INSULIN (INSULIN) [Concomitant]
  3. GLIPIZIDE [Concomitant]

REACTIONS (1)
  - DRUG INEFFECTIVE [None]
